FAERS Safety Report 7518604-6 (Version None)
Quarter: 2011Q2

REPORT INFORMATION
  Report Type: 
  Country: None (occurrence: None)
  Receive Date: 20110602
  Receipt Date: 20110520
  Transmission Date: 20111010
  Serious: Yes (Hospitalization)
  Sender: FDA-Public Use
  Company Number: US-KINGPHARMUSA00001-K201100624

PATIENT
  Age: 59 Year
  Sex: Male

DRUGS (3)
  1. SYNERCID [Suspect]
     Indication: ACTINOMYCOSIS
  2. SYNERCID [Suspect]
     Indication: PNEUMONIA
  3. SYNERCID [Suspect]
     Indication: STAPHYLOCOCCAL INFECTION
     Dosage: UNK, Q8H
     Route: 042
     Dates: start: 20110503, end: 20110501

REACTIONS (4)
  - GENERAL PHYSICAL HEALTH DETERIORATION [None]
  - DRUG RESISTANCE [None]
  - BRONCHIAL SECRETION RETENTION [None]
  - CARDIO-RESPIRATORY ARREST [None]
